FAERS Safety Report 17012449 (Version 2)
Quarter: 2019Q4

REPORT INFORMATION
  Report Type: Spontaneous
  Country: GB (occurrence: GB)
  Receive Date: 20191108
  Receipt Date: 20191224
  Transmission Date: 20200122
  Serious: Yes (Hospitalization)
  Sender: FDA-Public Use
  Company Number: GB-ROCHE-2463393

PATIENT
  Age: 67 Year
  Sex: Male

DRUGS (1)
  1. RITUXIMAB. [Suspect]
     Active Substance: RITUXIMAB
     Indication: MYASTHENIA GRAVIS
     Dosage: 4 WEEKS COURSE
     Route: 042

REACTIONS (4)
  - Intentional product use issue [Unknown]
  - Off label use [Unknown]
  - Anterior interosseous syndrome [Recovering/Resolving]
  - Hypersensitivity [Recovering/Resolving]
